FAERS Safety Report 9579877 (Version 1)
Quarter: 2013Q3

REPORT INFORMATION
  Report Type: Spontaneous
  Country: US (occurrence: None)
  Receive Date: 20130916
  Receipt Date: 20130916
  Transmission Date: 20140515
  Serious: Yes (Hospitalization)
  Sender: FDA-Public Use
  Company Number: JPI-P-026315

PATIENT
  Age: 33 Year
  Sex: Male
  Weight: 90 kg

DRUGS (5)
  1. XYREM (500 MILLIGRAM/MILLILITERS, SOLUTION) (SODIUM OXYBATE) [Suspect]
     Indication: CATAPLEXY
     Route: 048
     Dates: start: 20081224
  2. PAROXETINE HYDROCHLORIDE [Concomitant]
  3. METHYLPHENIDATE HYDROCHLORIDE [Concomitant]
  4. LISINOPRIL [Concomitant]
  5. CLONAZEPAM [Concomitant]

REACTIONS (3)
  - Suicidal ideation [None]
  - Depression [None]
  - Condition aggravated [None]
